FAERS Safety Report 4339032-0 (Version None)
Quarter: 2004Q2

REPORT INFORMATION
  Report Type: 
  Country: None (occurrence: None)
  Receive Date: 20040412
  Receipt Date: 20040331
  Transmission Date: 20050107
  Serious: Yes (Other)
  Sender: FDA-Public Use
  Company Number: HQWYE315801APR04

PATIENT
  Age: 45 Year
  Sex: Female
  Weight: 61.29 kg

DRUGS (3)
  1. PREMARIN [Suspect]
     Indication: HOT FLUSH
     Dosage: SEE IMAGE
     Route: 048
     Dates: start: 19990101
  2. INDERAL LA [Concomitant]
  3. VITAMIN E [Concomitant]

REACTIONS (4)
  - DRUG INEFFECTIVE [None]
  - MUSCLE CRAMP [None]
  - RETINAL DEGENERATION [None]
  - VISUAL DISTURBANCE [None]
